FAERS Safety Report 9726483 (Version 1)
Quarter: 2013Q4

REPORT INFORMATION
  Report Type: Spontaneous
  Country: FR (occurrence: FR)
  Receive Date: 20131203
  Receipt Date: 20131203
  Transmission Date: 20140711
  Serious: Yes (Life-Threatening, Other)
  Sender: FDA-Public Use
  Company Number: FR-BRISTOL-MYERS SQUIBB COMPANY-19857317

PATIENT
  Age: 59 Year
  Sex: Male

DRUGS (3)
  1. TAXOL [Suspect]
     Indication: METASTATIC BRONCHIAL CARCINOMA
     Dosage: NO OF COURSES 4 TILL 19JUN13
     Route: 042
  2. CARBOPLATINE [Suspect]
     Indication: METASTATIC BRONCHIAL CARCINOMA
     Dosage: NO OF COURSES 4
     Dates: start: 20130405, end: 20130619
  3. AVASTIN [Suspect]
     Indication: METASTATIC BRONCHIAL CARCINOMA
     Dosage: 17JUL13THE PATIENT RECEIVED HIS FIRST COURSE
     Dates: start: 20130405, end: 20130926

REACTIONS (2)
  - Palmar-plantar erythrodysaesthesia syndrome [Not Recovered/Not Resolved]
  - Neuropathy peripheral [Not Recovered/Not Resolved]
